FAERS Safety Report 4485117-8 (Version None)
Quarter: 2004Q4

REPORT INFORMATION
  Report Type: 
  Country: None (occurrence: None)
  Receive Date: 20041021
  Receipt Date: 20041021
  Transmission Date: 20050328
  Serious: Yes (Hospitalization)
  Sender: FDA-Public Use
  Company Number: None

PATIENT
  Age: 50 Year
  Sex: Female

DRUGS (2)
  1. CEFAZOLIN [Suspect]
     Indication: CATHETER SITE INFECTION
     Dosage: 1 GRAM 1 DOSE INTRAVENOU
     Route: 042
     Dates: start: 20041001, end: 20041001
  2. CEFAZOLIN [Suspect]
     Indication: DIALYSIS
     Dosage: 1 GRAM 1 DOSE INTRAVENOU
     Route: 042
     Dates: start: 20041001, end: 20041001

REACTIONS (7)
  - ASTHENIA [None]
  - BLOOD PRESSURE SYSTOLIC DECREASED [None]
  - CONFUSIONAL STATE [None]
  - MEDICATION ERROR [None]
  - MUSCLE TWITCHING [None]
  - OXYGEN SATURATION DECREASED [None]
  - TREMOR [None]
